FAERS Safety Report 11933501 (Version 1)
Quarter: 2016Q1

REPORT INFORMATION
  Report Type: Spontaneous
  Country: IT (occurrence: IT)
  Receive Date: 20160121
  Receipt Date: 20160121
  Transmission Date: 20160526
  Serious: Yes (Life-Threatening, Other)
  Sender: FDA-Public Use
  Company Number: IT-BRISTOL-MYERS SQUIBB COMPANY-BMS-2016-001470

PATIENT
  Age: 79 Year
  Sex: Male
  Weight: 160 kg

DRUGS (1)
  1. NIVOLUMAB BMS [Suspect]
     Active Substance: NIVOLUMAB
     Indication: LUNG ADENOCARCINOMA METASTATIC
     Dosage: UNK, QCYCLE
     Route: 065
     Dates: start: 20150727

REACTIONS (3)
  - Respiratory failure [Recovering/Resolving]
  - Dyspnoea [Recovering/Resolving]
  - Hypoxia [Recovering/Resolving]

NARRATIVE: CASE EVENT DATE: 20151218
